FAERS Safety Report 25043043 (Version 1)
Quarter: 2025Q1

REPORT INFORMATION
  Report Type: Report from Study
  Country: US (occurrence: US)
  Receive Date: 20250305
  Receipt Date: 20250305
  Transmission Date: 20250409
  Serious: Yes (Other)
  Sender: MAYNE
  Company Number: US-MAYNE PHARMA-2025MYN000102

PATIENT

DRUGS (4)
  1. IMVEXXY [Suspect]
     Active Substance: ESTRADIOL
     Indication: Product used for unknown indication
     Route: 067
  2. PROGESTERONE [Concomitant]
     Active Substance: PROGESTERONE
     Indication: Product used for unknown indication
     Route: 065
  3. LEVOTHYROXINE [Concomitant]
     Active Substance: LEVOTHYROXINE
     Indication: Product used for unknown indication
     Route: 065
  4. ESTRADIOL [Concomitant]
     Active Substance: ESTRADIOL
     Indication: Product used for unknown indication
     Route: 065

REACTIONS (1)
  - Withdrawal bleed [Unknown]
